FAERS Safety Report 9157321 (Version 1)
Quarter: 2013Q1

REPORT INFORMATION
  Report Type: Spontaneous
  Country: DK (occurrence: None)
  Receive Date: 20130212
  Receipt Date: 20130212
  Transmission Date: 20140127
  Serious: Yes (Hospitalization)
  Sender: FDA-Public Use
  Company Number: 2013MA001040

PATIENT
  Age: 13 Year
  Sex: Female

DRUGS (6)
  1. ALPRAZOLAM TABLETS USP, 2 MG (PUREPAC) (ALPRAZOLAM) [Suspect]
     Indication: INTENTIONAL OVERDOSE
     Route: 048
     Dates: start: 20130102, end: 20130102
  2. PANTOPRAZOLE SODIUM [Suspect]
     Indication: INTENTIONAL OVERDOSE
     Route: 048
     Dates: start: 20130102, end: 20130102
  3. ESOMEPRAZOLE [Suspect]
     Indication: INTENTIONAL OVERDOSE
     Route: 048
     Dates: start: 20130102, end: 20130102
  4. AMITRIPTYLINE HYDROCHLORIDE [Suspect]
     Indication: INTENTIONAL OVERDOSE
     Route: 048
     Dates: start: 20130102, end: 20130102
  5. SPORANOX [Suspect]
     Indication: INTENTIONAL OVERDOSE
     Route: 048
     Dates: start: 20130102, end: 20130102
  6. MORNIFLUMATE [Suspect]
     Indication: INTENTIONAL OVERDOSE
     Route: 048
     Dates: start: 20130102, end: 20130102

REACTIONS (5)
  - Aphasia [None]
  - Sopor [None]
  - Intentional overdose [None]
  - Overdose [None]
  - Speech disorder [None]
